FAERS Safety Report 9776230 (Version 1)
Quarter: 2013Q4

REPORT INFORMATION
  Report Type: Spontaneous
  Country: US (occurrence: US)
  Receive Date: 20131220
  Receipt Date: 20131220
  Transmission Date: 20140711
  Serious: No
  Sender: FDA-Public Use
  Company Number: US-009507513-1311USA000482

PATIENT
  Age: 28 Year
  Sex: Male

DRUGS (4)
  1. DULERA [Suspect]
     Indication: PNEUMONIA
     Dosage: 200/5 MCG, I PUFF TWICE A DAY
     Dates: start: 201302
  2. LEVOFLOXACIN [Concomitant]
  3. SPIRIVA [Concomitant]
  4. GABAPENTIN [Concomitant]

REACTIONS (2)
  - Pneumonia [Recovering/Resolving]
  - Drug dose omission [Unknown]
